FAERS Safety Report 25535413 (Version 2)
Quarter: 2025Q3

REPORT INFORMATION
  Report Type: Spontaneous
  Country: US (occurrence: US)
  Receive Date: 20250709
  Receipt Date: 20250716
  Transmission Date: 20251021
  Serious: Yes (Other)
  Sender: MERCK SHARP & DOHME LLC
  Company Number: US-009507513-2305245

PATIENT
  Sex: Female
  Weight: 56.82 kg

DRUGS (20)
  1. WINREVAIR [Suspect]
     Active Substance: SOTATERCEPT-CSRK
     Indication: Pulmonary arterial hypertension
     Route: 058
  2. DUPIXENT [Suspect]
     Active Substance: DUPILUMAB
     Indication: Dermatitis
     Dosage: STRENGTH: 300 MG/2ML
     Route: 058
  3. SODIUM CHLORIDE [Concomitant]
     Active Substance: SODIUM CHLORIDE
  4. Epoprostenol sodium (veletri) [Concomitant]
  5. macitentan (opsumit) [Concomitant]
  6. mesalazine (lialda) [Concomitant]
  7. HYDROXYZINE HYDROCHLORIDE [Concomitant]
     Active Substance: HYDROXYZINE HYDROCHLORIDE
  8. OXYGEN [Concomitant]
     Active Substance: OXYGEN
  9. OMEPRAZOLE [Concomitant]
     Active Substance: OMEPRAZOLE
  10. SERTRALINE HYDROCHLORIDE [Concomitant]
     Active Substance: SERTRALINE HYDROCHLORIDE
  11. TOPIRAMATE [Concomitant]
     Active Substance: TOPIRAMATE
  12. ACETAMINOPHEN [Concomitant]
     Active Substance: ACETAMINOPHEN
  13. OCREVUS [Concomitant]
     Active Substance: OCRELIZUMAB
  14. rimegepant sulfate (nurtec odt) [Concomitant]
  15. MECLOZINE DIHYDROCHLORIDE [Concomitant]
     Active Substance: MECLOZINE DIHYDROCHLORIDE
  16. FUROSEMIDE [Concomitant]
     Active Substance: FUROSEMIDE
  17. riociguat (adempas) [Concomitant]
  18. SODIUM CHLORIDE [Concomitant]
     Active Substance: SODIUM CHLORIDE
  19. VITAMINS [Concomitant]
     Active Substance: VITAMINS
  20. tetryzoline hcl (visine) [Concomitant]

REACTIONS (7)
  - Crohn^s disease [Unknown]
  - Diarrhoea [Unknown]
  - Headache [Unknown]
  - Migraine [Unknown]
  - Flushing [Unknown]
  - Platelet count decreased [Unknown]
  - Catheter site discharge [Unknown]
